FAERS Safety Report 9129796 (Version 3)
Quarter: 2013Q3

REPORT INFORMATION
  Report Type: Report from Study
  Country: CA (occurrence: CA)
  Receive Date: 20130228
  Receipt Date: 20130910
  Transmission Date: 20140515
  Serious: Yes (Other)
  Sender: FDA-Public Use
  Company Number: CA-ROCHE-1194507

PATIENT
  Age: 60 Year
  Sex: Male

DRUGS (6)
  1. RITUXAN [Suspect]
     Indication: RHEUMATOID ARTHRITIS
     Dosage: LAST TREATMENT ON 28/APR/2011
     Route: 042
     Dates: start: 20060616
  2. LEFLUNOMIDE [Concomitant]
     Indication: RHEUMATOID ARTHRITIS
     Route: 048
  3. ACLASTA [Concomitant]
     Indication: OSTEOARTHRITIS
     Route: 042
  4. DIPHENHYDRAMINE HCL [Concomitant]
     Route: 048
     Dates: start: 20100521
  5. ACETAMINOPHEN [Concomitant]
     Route: 048
     Dates: start: 20100521
  6. METHYLPREDNISOLONE [Concomitant]
     Route: 042
     Dates: start: 20100521

REACTIONS (6)
  - Small intestine adenocarcinoma [Not Recovered/Not Resolved]
  - Gastric dilatation [Unknown]
  - Biliary dilatation [Unknown]
  - Weight decreased [Not Recovered/Not Resolved]
  - Liver function test abnormal [Unknown]
  - Infusion related reaction [Unknown]
